FAERS Safety Report 7417646-9 (Version None)
Quarter: 2011Q2

REPORT INFORMATION
  Report Type: 
  Country: None (occurrence: None)
  Receive Date: 20110415
  Receipt Date: 20110413
  Transmission Date: 20111010
  Serious: Yes (Other)
  Sender: FDA-Public Use
  Company Number: US-PFIZER INC-2011036655

PATIENT
  Sex: Male

DRUGS (1)
  1. CHANTIX [Suspect]
     Indication: SMOKING CESSATION THERAPY
     Dosage: UNK
     Route: 048
     Dates: end: 20110101

REACTIONS (7)
  - TONGUE BLISTERING [None]
  - RASH [None]
  - OROPHARYNGEAL BLISTERING [None]
  - PRURITUS [None]
  - ORAL PAIN [None]
  - PIGMENTATION DISORDER [None]
  - PYREXIA [None]
